FAERS Safety Report 8556875-8 (Version None)
Quarter: 2012Q3

REPORT INFORMATION
  Report Type: 
  Country: None (occurrence: None)
  Receive Date: 20120801
  Receipt Date: 20120727
  Transmission Date: 20120928
  Serious: Yes (Other)
  Sender: FDA-Public Use
  Company Number: US-ROCHE-1056268

PATIENT
  Age: 51 Year
  Sex: Male
  Weight: 90.6 kg

DRUGS (15)
  1. METOPROLOL TARTRATE [Concomitant]
  2. COPEGUS [Suspect]
     Indication: HEPATITIS C
     Route: 048
     Dates: start: 20111229, end: 20120118
  3. GS 5885 (HCV NS5A INHIBITOR) [Suspect]
     Indication: HEPATITIS C
     Dosage: DF
     Dates: start: 20111229, end: 20120118
  4. GS 9451 (NS3 PROTEASE INHIBITOR) [Suspect]
     Dates: start: 20120119, end: 20120313
  5. ASPIRIN [Concomitant]
  6. CELEXA [Concomitant]
  7. TYLENOL (CAPLET) [Concomitant]
  8. PEGASYS [Suspect]
     Indication: HEPATITIS C
     Dates: start: 20120119, end: 20120309
  9. COPEGUS [Suspect]
     Route: 048
     Dates: start: 20120119, end: 20120313
  10. BLINDED TEGOBUVIR [Suspect]
     Indication: HEPATITIS C
     Route: 048
     Dates: start: 20111229, end: 20120118
  11. ASPIRIN [Concomitant]
  12. GS 5885 (HCV NS5A INHIBITOR) [Suspect]
     Dates: start: 20120119, end: 20120313
  13. GS 9451 (NS3 PROTEASE INHIBITOR) [Suspect]
     Indication: HEPATITIS C
     Route: 048
     Dates: start: 20111229, end: 20120118
  14. SULINDAC [Concomitant]
  15. AZITHROMYCIN [Concomitant]

REACTIONS (5)
  - DYSPEPSIA [None]
  - DECREASED APPETITE [None]
  - HYPOGEUSIA [None]
  - VISUAL IMPAIRMENT [None]
  - DIZZINESS [None]
